FAERS Safety Report 8290313-8 (Version None)
Quarter: 2012Q2

REPORT INFORMATION
  Report Type: 
  Country: None (occurrence: None)
  Receive Date: 20120417
  Receipt Date: 20120409
  Transmission Date: 20120825
  Serious: Yes (Other)
  Sender: FDA-Public Use
  Company Number: US-ROCHE-1048630

PATIENT
  Sex: Male

DRUGS (2)
  1. ZELBORAF [Suspect]
     Indication: METASTATIC MALIGNANT MELANOMA
     Route: 048
     Dates: start: 20120123
  2. ZELBORAF [Suspect]
     Route: 048
     Dates: start: 20120123

REACTIONS (5)
  - MALIGNANT MELANOMA [None]
  - MASS [None]
  - DECREASED APPETITE [None]
  - TONGUE BLISTERING [None]
  - WEIGHT DECREASED [None]
